FAERS Safety Report 4757431-X (Version None)
Quarter: 2005Q3

REPORT INFORMATION
  Report Type: 
  Country: None (occurrence: None)
  Receive Date: 20050831
  Receipt Date: 20050824
  Transmission Date: 20060218
  Serious: Yes (Life-Threatening)
  Sender: FDA-Public Use
  Company Number: 200512840FR

PATIENT
  Age: 76 Year
  Sex: Female

DRUGS (8)
  1. LOVENOX [Suspect]
     Indication: PERIPHERAL VASCULAR DISORDER
     Route: 058
     Dates: end: 20050620
  2. PREVISCAN 20 MG [Suspect]
     Indication: PERIPHERAL VASCULAR DISORDER
     Route: 048
     Dates: start: 20050614, end: 20050620
  3. CLAMOXYL [Concomitant]
     Route: 048
  4. NEXIUM [Concomitant]
     Route: 048
  5. LAROXYL [Concomitant]
     Route: 048
  6. CLONAZEPAM [Concomitant]
     Route: 048
  7. MOVICOL [Concomitant]
  8. TARDYFERON [Concomitant]

REACTIONS (4)
  - ANAEMIA [None]
  - HAEMATOMA [None]
  - PROTHROMBIN LEVEL DECREASED [None]
  - SHOCK HAEMORRHAGIC [None]
